FAERS Safety Report 19941124 (Version 1)
Quarter: 2021Q4

REPORT INFORMATION
  Report Type: Spontaneous
  Country: JP (occurrence: JP)
  Receive Date: 20211012
  Receipt Date: 20211012
  Transmission Date: 20220303
  Serious: Yes (Other)
  Sender: FDA-Public Use
  Company Number: JP-SUN PHARMACEUTICAL INDUSTRIES LTD-2021R1-313373

PATIENT
  Age: 68 Year
  Sex: Female

DRUGS (3)
  1. CARBOPLATIN [Suspect]
     Active Substance: CARBOPLATIN
     Indication: Chemotherapy
     Dosage: UNK/ AUC  5450 MG/BODY
     Route: 065
  2. ETOPOSIDE [Suspect]
     Active Substance: ETOPOSIDE
     Indication: Chemotherapy
     Dosage: 115 MILLIGRAM/ BODY
     Route: 065
  3. Predinisolone [Concomitant]
     Indication: Encephalitis
     Dosage: 1 MG/KG/DAY FOR A WEEK
     Route: 065

REACTIONS (1)
  - Therapy partial responder [Unknown]
